FAERS Safety Report 10967847 (Version 1)
Quarter: 2015Q1

REPORT INFORMATION
  Report Type: Spontaneous
  Country: CH (occurrence: CH)
  Receive Date: 20150330
  Receipt Date: 20150330
  Transmission Date: 20150721
  Serious: Yes (Hospitalization, Other)
  Sender: FDA-Public Use
  Company Number: CH-GLAXOSMITHKLINE-CH2015GSK039962

PATIENT
  Age: 57 Year
  Sex: Female

DRUGS (5)
  1. SOLU-MEDROL [Suspect]
     Active Substance: METHYLPREDNISOLONE SODIUM SUCCINATE
     Indication: PLASMA CELL MYELOMA
     Dosage: 125 MG, SINGLE
     Route: 042
     Dates: start: 20150106, end: 20150106
  2. VITAMIN B6 [Concomitant]
     Active Substance: PYRIDOXINE HYDROCHLORIDE
  3. ISOZID [Concomitant]
     Active Substance: ISONIAZID
     Indication: LATENT TUBERCULOSIS
  4. ALKERAN [Suspect]
     Active Substance: MELPHALAN
     Indication: STEM CELL TRANSPLANT
     Dosage: 300 MG, SINGLE
     Route: 042
     Dates: start: 20150106, end: 20150106
  5. DAFALGAN [Concomitant]
     Active Substance: ACETAMINOPHEN

REACTIONS (6)
  - Thrombocytopenia [Not Recovered/Not Resolved]
  - Bronchopulmonary aspergillosis [Recovering/Resolving]
  - Agranulocytosis [Recovered/Resolved]
  - Sepsis [Recovered/Resolved]
  - Aspergilloma [Recovering/Resolving]
  - Respiratory failure [Not Recovered/Not Resolved]

NARRATIVE: CASE EVENT DATE: 20150112
